FAERS Safety Report 13805147 (Version 1)
Quarter: 2017Q3

REPORT INFORMATION
  Report Type: Spontaneous
  Country: US (occurrence: US)
  Receive Date: 20170728
  Receipt Date: 20170728
  Transmission Date: 20171127
  Serious: No
  Sender: FDA-Public Use
  Company Number: US-ABBVIE-17P-163-2021166-00

PATIENT
  Sex: Female
  Weight: 66.28 kg

DRUGS (1)
  1. SYNTHROID [Suspect]
     Active Substance: LEVOTHYROXINE SODIUM
     Indication: PRODUCT USED FOR UNKNOWN INDICATION
     Dosage: ONCE IN 1994 AND ONCE AGAIN ON UNKNOWN DATE (TRIED TWICE).
     Route: 065

REACTIONS (2)
  - Fatigue [Recovered/Resolved]
  - Overdose [Recovered/Resolved]
